FAERS Safety Report 7217372-5 (Version None)
Quarter: 2011Q1

REPORT INFORMATION
  Report Type: 
  Country: None (occurrence: None)
  Receive Date: 20110110
  Receipt Date: 20101231
  Transmission Date: 20110831
  Serious: Yes (Death, Other)
  Sender: FDA-Public Use
  Company Number: CH-BAYER-201041790GPV

PATIENT
  Age: 83 Year
  Sex: Female

DRUGS (2)
  1. REFLUDAN [Suspect]
     Indication: PRODUCT USED FOR UNKNOWN INDICATION
  2. UNFRACTIONATED HEPARIN [Concomitant]

REACTIONS (8)
  - DEEP VEIN THROMBOSIS [None]
  - DIALYSIS [None]
  - SPLEEN DISORDER [None]
  - RENAL FAILURE [None]
  - PULMONARY EMBOLISM [None]
  - COAGULATION TIME PROLONGED [None]
  - STAPHYLOCOCCAL SEPSIS [None]
  - DEATH [None]
